FAERS Safety Report 16473288 (Version 5)
Quarter: 2022Q2

REPORT INFORMATION
  Report Type: Spontaneous
  Country: US (occurrence: US)
  Receive Date: 20190625
  Receipt Date: 20220419
  Transmission Date: 20220720
  Serious: Yes (Disabling, Other)
  Sender: FDA-Public Use
  Company Number: US-GLAXOSMITHKLINE-US2019GSK113436

PATIENT
  Age: 69 Year
  Sex: Female
  Weight: 100.23 kg

DRUGS (8)
  1. PREVACID 24 HR [Suspect]
     Active Substance: LANSOPRAZOLE
     Indication: Dyspepsia
     Dosage: 15 MG, QD
     Route: 048
     Dates: start: 2010, end: 2019
  2. PREVACID 24 HR [Suspect]
     Active Substance: LANSOPRAZOLE
     Indication: Gastrooesophageal reflux disease
     Dosage: UNK
     Route: 048
     Dates: start: 20100101, end: 20190516
  3. PREVACID [Suspect]
     Active Substance: LANSOPRAZOLE
     Indication: Gastrooesophageal reflux disease
     Dosage: 30 MG, QD
     Route: 065
     Dates: start: 201405, end: 201801
  4. LANSOPRAZOLE [Suspect]
     Active Substance: LANSOPRAZOLE
     Indication: Gastrooesophageal reflux disease
     Dosage: 15 MG, QD
     Route: 065
     Dates: start: 201602, end: 201603
  5. PANTOPRAZOLE [Suspect]
     Active Substance: PANTOPRAZOLE
     Indication: Gastrooesophageal reflux disease
     Dosage: 40 MG
     Route: 065
     Dates: start: 20161005
  6. OMEPRAZOLE [Suspect]
     Active Substance: OMEPRAZOLE
     Indication: Gastrooesophageal reflux disease
     Dosage: 20 MG, QD
     Route: 065
     Dates: start: 2018
  7. PRILOSEC [Suspect]
     Active Substance: OMEPRAZOLE MAGNESIUM
     Indication: Gastrooesophageal reflux disease
     Dosage: 40 MG, QD
     Route: 065
     Dates: start: 20140504, end: 201406
  8. PREVACID [Suspect]
     Active Substance: LANSOPRAZOLE
     Indication: Product used for unknown indication
     Dosage: 15 MG, QD
     Route: 048

REACTIONS (14)
  - Renal injury [Unknown]
  - Chronic kidney disease [Not Recovered/Not Resolved]
  - Acute kidney injury [Unknown]
  - Congenital cystic kidney disease [Unknown]
  - Hypertensive nephropathy [Unknown]
  - End stage renal disease [Unknown]
  - Renal failure [Unknown]
  - Nephropathy [Unknown]
  - Haematuria [Unknown]
  - Urinary incontinence [Unknown]
  - Proteinuria [Unknown]
  - Nephrectomy [Unknown]
  - Urinary tract infection [Unknown]
  - Single functional kidney [Unknown]

NARRATIVE: CASE EVENT DATE: 20140101
